FAERS Safety Report 6381601-0 (Version None)
Quarter: 2009Q3

REPORT INFORMATION
  Report Type: 
  Country: None (occurrence: None)
  Receive Date: 20090925
  Receipt Date: 20090915
  Transmission Date: 20100115
  Serious: Yes (Other)
  Sender: FDA-Public Use
  Company Number: 09US003186

PATIENT
  Age: 68 Year
  Sex: Female
  Weight: 79.4 kg

DRUGS (8)
  1. EQUATWE NIGHTIME FREE CHRY  COLD/FLU RELIEF 6 HR LIQ [Suspect]
     Indication: COUGH
     Dosage: 30 MG, PRN, ORAL
     Route: 048
     Dates: start: 20090513, end: 20090811
  2. EQUATWE NIGHTIME FREE CHRY  COLD/FLU RELIEF 6 HR LIQ [Suspect]
     Indication: NASOPHARYNGITIS
     Dosage: 30 MG, PRN, ORAL
     Route: 048
     Dates: start: 20090513, end: 20090811
  3. SINGULAIR [Concomitant]
  4. LIPITOR [Concomitant]
  5. OMEPRAZOLE [Concomitant]
  6. CELEBREX [Concomitant]
  7. HERBAL PREPARATION [Concomitant]
  8. VITAMINS [Concomitant]

REACTIONS (9)
  - ANXIETY [None]
  - COUGH [None]
  - DYSPNOEA [None]
  - HYPERSENSITIVITY [None]
  - HYPERVENTILATION [None]
  - PALATAL OEDEMA [None]
  - RETCHING [None]
  - THROAT IRRITATION [None]
  - WHEELCHAIR USER [None]
